FAERS Safety Report 13915592 (Version 1)
Quarter: 2017Q3

REPORT INFORMATION
  Report Type: Spontaneous
  Country: US (occurrence: US)
  Receive Date: 20170828
  Receipt Date: 20170828
  Transmission Date: 20171127
  Serious: Yes (Other)
  Sender: FDA-Public Use
  Company Number: None

PATIENT
  Sex: Female
  Weight: 101.25 kg

DRUGS (3)
  1. HYDROCODONE BITARTRATE AND ACETAMINOPHEN [Suspect]
     Active Substance: ACETAMINOPHEN\HYDROCODONE BITARTRATE
     Indication: SCIATICA
     Dosage: ?          QUANTITY:100 TABLET(S);?
     Route: 048
  2. HYDROCODONE BITARTRATE AND ACETAMINOPHEN [Suspect]
     Active Substance: ACETAMINOPHEN\HYDROCODONE BITARTRATE
     Indication: INTERVERTEBRAL DISC PROTRUSION
     Dosage: ?          QUANTITY:100 TABLET(S);?
     Route: 048
  3. HYDROCODONE BITARTRATE AND ACETAMINOPHEN [Suspect]
     Active Substance: ACETAMINOPHEN\HYDROCODONE BITARTRATE
     Indication: RADICULOPATHY
     Dosage: ?          QUANTITY:100 TABLET(S);?
     Route: 048

REACTIONS (7)
  - Product formulation issue [None]
  - Lactose intolerance [None]
  - Diarrhoea [None]
  - Withdrawal syndrome [None]
  - Headache [None]
  - Rash [None]
  - Drug effect decreased [None]

NARRATIVE: CASE EVENT DATE: 20170821
